FAERS Safety Report 9648756 (Version 1)
Quarter: 2013Q4

REPORT INFORMATION
  Report Type: Spontaneous
  Country: US (occurrence: None)
  Receive Date: 20131025
  Receipt Date: 20131025
  Transmission Date: 20140711
  Serious: Yes (Hospitalization)
  Sender: FDA-Public Use
  Company Number: None

PATIENT
  Age: 83 Year
  Sex: Male
  Weight: 85 kg

DRUGS (11)
  1. XARELTO 10MG JANSSEN [Suspect]
     Indication: THROMBOSIS PROPHYLAXIS
     Route: 048
     Dates: start: 20131017, end: 20131022
  2. XARELTO 10MG JANSSEN [Suspect]
     Indication: THROMBOSIS PROPHYLAXIS
     Route: 048
     Dates: start: 20131017, end: 20131022
  3. XARELTO 10MG JANSSEN [Suspect]
     Indication: KNEE ARTHROPLASTY
     Route: 048
     Dates: start: 20131017, end: 20131022
  4. APAP [Concomitant]
  5. ALLOPURINOL [Concomitant]
  6. AGGRENOX [Concomitant]
  7. FELOPIDINE [Concomitant]
  8. NORCO [Concomitant]
  9. DOCUSATE SODIUM\SENNOSIDES [Concomitant]
  10. TAMSULOSIN [Concomitant]
  11. TRAMADOL [Concomitant]

REACTIONS (1)
  - Pulmonary embolism [None]
